FAERS Safety Report 6435485-2 (Version None)
Quarter: 2009Q4

REPORT INFORMATION
  Report Type: 
  Country: None (occurrence: None)
  Receive Date: 20091111
  Receipt Date: 20091103
  Transmission Date: 20100525
  Serious: Yes (Hospitalization)
  Sender: FDA-Public Use
  Company Number: US-BIOGENIDEC-2008BI000460

PATIENT
  Age: 54 Year
  Sex: Female

DRUGS (9)
  1. TYSABRI [Suspect]
     Indication: MULTIPLE SCLEROSIS
     Route: 042
     Dates: start: 20071113, end: 20071113
  2. TYSABRI [Suspect]
     Route: 042
     Dates: start: 20080205
  3. PREMARIN [Concomitant]
  4. PROVERA [Concomitant]
  5. BACLOFEN [Concomitant]
  6. AMANTADINE HCL [Concomitant]
  7. SYNTHROID [Concomitant]
  8. INTERMITTENT STEROIDS [Concomitant]
  9. STUDY MEDICATION (NOS) [Concomitant]
     Indication: DRUG USE FOR UNKNOWN INDICATION

REACTIONS (6)
  - ENDOMETRIOSIS [None]
  - FATIGUE [None]
  - GENITAL DISORDER FEMALE [None]
  - MULTIPLE SCLEROSIS RELAPSE [None]
  - OVARIAN CANCER [None]
  - SUDDEN ONSET OF SLEEP [None]
